FAERS Safety Report 8391422-5 (Version None)
Quarter: 2012Q1

REPORT INFORMATION
  Report Type: 
  Country: None (occurrence: None)
  Receive Date: 20120323
  Receipt Date: 20110915
  Transmission Date: 20120608
  Serious: Yes (Other)
  Sender: FDA-Public Use
  Company Number: 163-21880-11033301

PATIENT
  Age: 63 Year
  Sex: Female

DRUGS (9)
  1. NEXIUM [Concomitant]
  2. ACYCLOVIR [Concomitant]
  3. ASPIRIN [Concomitant]
  4. REVLIMID [Suspect]
     Indication: MULTIPLE MYELOMA
     Dosage: 15 MG, 1 IN 1 D, PO ; 5 MG, 1 IN 1 D, PO ; 5 MG, 1 IN 1 D, PO ; 10 MG, Q DAY, PO
     Route: 048
     Dates: start: 20100301
  5. REVLIMID [Suspect]
     Indication: MULTIPLE MYELOMA
     Dosage: 15 MG, 1 IN 1 D, PO ; 5 MG, 1 IN 1 D, PO ; 5 MG, 1 IN 1 D, PO ; 10 MG, Q DAY, PO
     Route: 048
     Dates: start: 20100701
  6. REVLIMID [Suspect]
     Indication: MULTIPLE MYELOMA
     Dosage: 15 MG, 1 IN 1 D, PO ; 5 MG, 1 IN 1 D, PO ; 5 MG, 1 IN 1 D, PO ; 10 MG, Q DAY, PO
     Route: 048
     Dates: start: 20090415
  7. BACTRIM [Concomitant]
  8. FOLIC ACID [Concomitant]
  9. MULTIVITAMIN [Concomitant]

REACTIONS (2)
  - MUSCLE SPASMS [None]
  - PNEUMONIA [None]
